FAERS Safety Report 15523421 (Version 2)
Quarter: 2018Q4

REPORT INFORMATION
  Report Type: Report from Study
  Country: GB (occurrence: GB)
  Receive Date: 20181018
  Receipt Date: 20181102
  Transmission Date: 20190205
  Serious: Yes (Other)
  Sender: FDA-Public Use
  Company Number: PHHY2018GB089671

PATIENT
  Age: 78 Year
  Sex: Female

DRUGS (1)
  1. SANDOSTATIN LAR DEPOT [Suspect]
     Active Substance: OCTREOTIDE ACETATE
     Indication: NEUROENDOCRINE TUMOUR
     Dosage: 30 MG, Q2W (ONCE EVERY 2 WEEKS)
     Route: 030
     Dates: start: 201702

REACTIONS (10)
  - Diarrhoea [Recovering/Resolving]
  - Contusion [Unknown]
  - Tremor [Unknown]
  - Malaise [Unknown]
  - Weight decreased [Unknown]
  - Lethargy [Unknown]
  - Fatigue [Unknown]
  - Syncope [Unknown]
  - Orthostatic hypotension [Unknown]
  - Carcinoid crisis [Unknown]

NARRATIVE: CASE EVENT DATE: 20181014
